FAERS Safety Report 10055602 (Version 3)
Quarter: 2014Q2

REPORT INFORMATION
  Report Type: Spontaneous
  Country: DE (occurrence: DE)
  Receive Date: 20140403
  Receipt Date: 20140512
  Transmission Date: 20141212
  Serious: Yes (Hospitalization, Other)
  Sender: FDA-Public Use
  Company Number: DE-ROCHE-1376519

PATIENT
  Age: 46 Year
  Sex: Female
  Weight: 110 kg

DRUGS (4)
  1. KADCYLA [Suspect]
     Indication: BREAST CANCER
     Route: 042
     Dates: start: 20140324, end: 201404
  2. KEVATRIL [Concomitant]
     Indication: PREMEDICATION
     Route: 042
     Dates: start: 20140414
  3. DEXAMETHASONE [Concomitant]
     Indication: PREMEDICATION
     Route: 042
     Dates: start: 20140414
  4. NACL 0.9 IV SOLUTION [Concomitant]
     Route: 042
     Dates: start: 20140414

REACTIONS (6)
  - Dysphagia [Recovered/Resolved]
  - Personality change [Unknown]
  - Headache [Recovered/Resolved]
  - Nausea [Recovering/Resolving]
  - Medication error [Unknown]
  - Nervous system disorder [Unknown]
